FAERS Safety Report 6472967-1 (Version None)
Quarter: 2009Q4

REPORT INFORMATION
  Report Type: 
  Country: None (occurrence: None)
  Receive Date: 20091204
  Receipt Date: 20091124
  Transmission Date: 20100525
  Serious: Yes (Hospitalization)
  Sender: FDA-Public Use
  Company Number: GB-RANBAXY-2009RR-29449

PATIENT
  Age: 64 Year
  Sex: Male

DRUGS (1)
  1. IBUPROFEN [Suspect]
     Indication: MUSCULOSKELETAL PAIN
     Dosage: 200 MG, UNK
     Route: 048
     Dates: start: 20091002, end: 20091109

REACTIONS (1)
  - THROMBOCYTOPENIA [None]
